FAERS Safety Report 7371826-X (Version None)
Quarter: 2011Q1

REPORT INFORMATION
  Report Type: 
  Country: None (occurrence: None)
  Receive Date: 20110324
  Receipt Date: 20110315
  Transmission Date: 20110831
  Serious: Yes (Hospitalization, Other)
  Sender: FDA-Public Use
  Company Number: AU-SANOFI-AVENTIS-2011SA010294

PATIENT
  Age: 38 Year
  Sex: Female
  Weight: 98.8 kg

DRUGS (6)
  1. VALPROATE SODIUM [Concomitant]
     Route: 048
  2. INSULIN GLARGINE [Suspect]
     Indication: TYPE 2 DIABETES MELLITUS
     Route: 058
     Dates: start: 20110214
  3. EVENING PRIMROSE OIL [Concomitant]
     Indication: MENTAL DISORDER
     Route: 048
  4. METFORMIN HCL [Concomitant]
     Route: 048
  5. OXAZEPAM [Concomitant]
     Indication: MENTAL DISORDER
     Route: 048
  6. INSULIN GLARGINE [Suspect]
     Dosage: 25 TIMES / 1 DAY
     Route: 058
     Dates: start: 20110202

REACTIONS (3)
  - HYPOGLYCAEMIA [None]
  - INTENTIONAL OVERDOSE [None]
  - SUICIDE ATTEMPT [None]
